FAERS Safety Report 17425834 (Version 1)
Quarter: 2020Q1

REPORT INFORMATION
  Report Type: Spontaneous
  Country: BR (occurrence: BR)
  Receive Date: 20200218
  Receipt Date: 20200218
  Transmission Date: 20200409
  Serious: Yes (Hospitalization, Other)
  Sender: FDA-Public Use
  Company Number: BR-SA-2020SA035133

PATIENT
  Age: 71 Year
  Sex: Male
  Weight: 70 kg

DRUGS (11)
  1. ENTRESTO [Concomitant]
     Active Substance: SACUBITRIL\VALSARTAN
     Indication: CARDIAC DISORDER
     Dosage: ONE TABLET THE NIGHT
     Route: 048
     Dates: start: 201908
  2. ROSUVASTATINE [ROSUVASTATIN] [Concomitant]
     Active Substance: ROSUVASTATIN
     Indication: BLOOD CHOLESTEROL
     Dosage: 1 TABLET PER DAY
     Route: 048
  3. THIOCTACID HR [Concomitant]
     Indication: DIABETIC NEUROPATHY
     Dosage: 1 DF, QD
     Route: 048
  4. FUROSEMIDE. [Concomitant]
     Active Substance: FUROSEMIDE
     Indication: DIURETIC THERAPY
     Dosage: 0.5 DF, QD
     Route: 048
  5. XARELTO [Concomitant]
     Active Substance: RIVAROXABAN
     Indication: BLOOD VISCOSITY DECREASED
     Dosage: 1 TABLET PER DAY
     Route: 048
     Dates: start: 201911
  6. TOUJEO [Suspect]
     Active Substance: INSULIN GLARGINE
     Indication: DIABETES MELLITUS
     Dosage: 14 IU, QD
     Route: 058
  7. EXODOS [Concomitant]
     Indication: ANXIETY
     Dosage: 5 DROP, QD
     Route: 048
     Dates: start: 202001
  8. LORAZEPAM. [Concomitant]
     Active Substance: LORAZEPAM
     Indication: SLEEP DISORDER
     Dosage: 1 TABLET, THE NIGHT
     Route: 048
     Dates: start: 202001
  9. SPIRONOLACTONE. [Concomitant]
     Active Substance: SPIRONOLACTONE
     Indication: CARDIAC DISORDER
     Dosage: 1 DF, QD
     Route: 048
     Dates: start: 201911
  10. AMIODARONE [Concomitant]
     Active Substance: AMIODARONE
     Dosage: 1 TABLET PER DAY
     Route: 048
     Dates: start: 201911
  11. METOPROLOL. [Concomitant]
     Active Substance: METOPROLOL
     Indication: CARDIAC DISORDER
     Dosage: 1 TABLET, EVERY 12 HOURS
     Route: 048

REACTIONS (5)
  - Unevaluable event [Unknown]
  - Diabetes mellitus inadequate control [Unknown]
  - Pulmonary oedema [Unknown]
  - Renal disorder [Unknown]
  - Cardiac disorder [Unknown]

NARRATIVE: CASE EVENT DATE: 20200208
